FAERS Safety Report 7583510-8 (Version None)
Quarter: 2011Q2

REPORT INFORMATION
  Report Type: 
  Country: None (occurrence: None)
  Receive Date: 20110630
  Receipt Date: 20110615
  Transmission Date: 20111010
  Serious: Yes (Hospitalization)
  Sender: FDA-Public Use
  Company Number: US-BAYER-2011-039190

PATIENT
  Age: 31 Year
  Sex: Female
  Weight: 54 kg

DRUGS (3)
  1. NITROFURANTOIN [Concomitant]
     Indication: URINARY TRACT INFECTION
     Dosage: 1 DF, BID
  2. YAZ [Suspect]
     Indication: CONTRACEPTION
     Dosage: UNK
     Dates: start: 20090101, end: 20100801
  3. YAZ [Suspect]
     Indication: MENSTRUAL CYCLE MANAGEMENT
     Dosage: UNK
     Dates: start: 20070101, end: 20100101

REACTIONS (19)
  - HEMIPARESIS [None]
  - CEREBROVASCULAR ACCIDENT [None]
  - MOTOR DYSFUNCTION [None]
  - HYPOAESTHESIA FACIAL [None]
  - QUALITY OF LIFE DECREASED [None]
  - SPEECH DISORDER [None]
  - PHYSICAL DISABILITY [None]
  - COGNITIVE DISORDER [None]
  - TREMOR [None]
  - CONVULSION [None]
  - EXERCISE TOLERANCE DECREASED [None]
  - HYPOAESTHESIA [None]
  - DEPRESSION [None]
  - MENTAL DISORDER [None]
  - CEREBRAL INFARCTION [None]
  - ASTHENIA [None]
  - FATIGUE [None]
  - GAIT DISTURBANCE [None]
  - ANXIETY DISORDER DUE TO A GENERAL MEDICAL CONDITION [None]
